FAERS Safety Report 7621081-8 (Version None)
Quarter: 2011Q3

REPORT INFORMATION
  Report Type: 
  Country: None (occurrence: None)
  Receive Date: 20110719
  Receipt Date: 20101209
  Transmission Date: 20111222
  Serious: No
  Sender: FDA-Public Use
  Company Number: US-KINGPHARMUSA00001-K201001489

PATIENT
  Sex: Female
  Weight: 71.202 kg

DRUGS (5)
  1. LEVOXYL [Suspect]
     Indication: THYROID DISORDER
     Dosage: 100 MCG, QD
     Route: 048
     Dates: start: 19800101, end: 20101208
  2. ASPIRIN [Concomitant]
     Dosage: 1 DF, QD (LOW DOSE)
     Route: 048
  3. SIMVASTATIN [Concomitant]
     Indication: BLOOD CHOLESTEROL INCREASED
     Dosage: 80 MG, QD
     Route: 048
  4. ENALAPRIL MALEATE [Concomitant]
     Indication: HYPERTENSION
     Dosage: 5/12.5 MG, QD
     Route: 048
  5. CALCIUM +VIT D [Concomitant]
     Dosage: 2 DF, QD
     Route: 048

REACTIONS (3)
  - RASH [None]
  - FATIGUE [None]
  - FLUSHING [None]
